FAERS Safety Report 4267981-0 (Version None)
Quarter: 2004Q1

REPORT INFORMATION
  Report Type: 
  Country: None (occurrence: None)
  Receive Date: 20040107
  Receipt Date: 20030321
  Transmission Date: 20041129
  Serious: Yes (Life-Threatening, Hospitalization)
  Sender: FDA-Public Use
  Company Number: 2003AP01345

PATIENT
  Age: 14 Month
  Sex: Male
  Weight: 10 kg

DRUGS (5)
  1. PROPOFOL [Suspect]
     Indication: ANAESTHESIA
  2. ROCURONIUM [Concomitant]
  3. ALBUTEROL [Concomitant]
  4. ACETAMINOPHEN [Concomitant]
  5. BENZOCAINE [Concomitant]

REACTIONS (1)
  - ANAPHYLACTIC REACTION [None]
